FAERS Safety Report 9676280 (Version 1)
Quarter: 2013Q4

REPORT INFORMATION
  Report Type: Spontaneous
  Country: US (occurrence: None)
  Receive Date: 20131106
  Receipt Date: 20131106
  Transmission Date: 20140711
  Serious: Yes (Hospitalization)
  Sender: FDA-Public Use
  Company Number: B0938230A

PATIENT
  Age: 6 Day
  Sex: Male

DRUGS (1)
  1. CALCIUM CARBONATE (FORMULATION UNKNOWN) (CALCIUM CARBONATE) [Suspect]

REACTIONS (6)
  - Convulsion [None]
  - Jaundice [None]
  - Hypoglycaemia [None]
  - Tremor [None]
  - ABO incompatibility [None]
  - Maternal drugs affecting foetus [None]
